FAERS Safety Report 17043307 (Version 6)
Quarter: 2020Q1

REPORT INFORMATION
  Report Type: Report from Study
  Country: US (occurrence: US)
  Receive Date: 20191118
  Receipt Date: 20200305
  Transmission Date: 20200409
  Serious: Yes (Death, Hospitalization)
  Sender: FDA-Public Use
  Company Number: US-ACTELION-A-NJ2018-180605

PATIENT
  Age: 73 Year
  Sex: Female
  Weight: 95.24 kg

DRUGS (5)
  1. ADCIRCA [Concomitant]
     Active Substance: TADALAFIL
  2. TADALAFIL. [Concomitant]
     Active Substance: TADALAFIL
  3. DILTIAZEM. [Concomitant]
     Active Substance: DILTIAZEM
  4. OPSUMIT [Suspect]
     Active Substance: MACITENTAN
     Indication: PULMONARY ARTERIAL HYPERTENSION
     Dosage: 10 MG, QD
     Route: 048
  5. TYVASO [Concomitant]
     Active Substance: TREPROSTINIL

REACTIONS (15)
  - Fall [Unknown]
  - Dyspnoea exertional [Recovering/Resolving]
  - Urinary tract infection [Unknown]
  - Loss of consciousness [Unknown]
  - Diarrhoea [Unknown]
  - Palpitations [Unknown]
  - Cough [Unknown]
  - Blood potassium decreased [Unknown]
  - Nausea [Unknown]
  - Arthralgia [Unknown]
  - Death [Fatal]
  - Headache [Unknown]
  - Food poisoning [Unknown]
  - Wound [Unknown]
  - Swelling [Recovering/Resolving]

NARRATIVE: CASE EVENT DATE: 20181006
